APPROVED DRUG PRODUCT: SECUADO
Active Ingredient: ASENAPINE
Strength: 7.6MG/24HR
Dosage Form/Route: SYSTEM;TRANSDERMAL
Application: N212268 | Product #003
Applicant: HISAMITSU PHARMACEUTICAL CO INC
Approved: Oct 11, 2019 | RLD: Yes | RS: No | Type: RX

PATENTS:
Patent 10583121 | Expires: Jul 25, 2033
Patent 10814002 | Expires: Jul 25, 2033
Patent 11123305 | Expires: Jul 25, 2033
Patent 11813364 | Expires: Sep 22, 2033
Patent 10022445 | Expires: Jul 25, 2033
Patent 9687474 | Expires: Jul 25, 2033